FAERS Safety Report 14815192 (Version 2)
Quarter: 2019Q1

REPORT INFORMATION
  Report Type: Spontaneous
  Country: FR (occurrence: FR)
  Receive Date: 20180426
  Receipt Date: 20190326
  Transmission Date: 20190417
  Serious: Yes (Hospitalization)
  Sender: FDA-Public Use
  Company Number: FR-PFIZER INC-2018169046

PATIENT
  Age: 3 Year
  Sex: Female

DRUGS (7)
  1. ZOPHREN [Concomitant]
     Active Substance: ONDANSETRON
     Dosage: 8 MG, 1X/DAY
     Route: 042
     Dates: start: 20180301, end: 20180304
  2. JOSACINE [Suspect]
     Active Substance: JOSAMYCIN
     Dosage: 750 MG, 1X/DAY
     Route: 048
     Dates: start: 20180225, end: 20180301
  3. FASTURTEC [Concomitant]
     Active Substance: RASBURICASE
     Dosage: 3 MG, UNK
     Route: 042
     Dates: start: 20180301, end: 20180301
  4. MORPHINE [Suspect]
     Active Substance: MORPHINE
     Indication: PAIN
     Dosage: 1.5 ML, UNK
     Route: 042
     Dates: start: 20180225, end: 20180302
  5. TAZOCILLINE [Suspect]
     Active Substance: PIPERACILLIN SODIUM\TAZOBACTAM SODIUM
     Dosage: 4.5 G, 1X/DAY
     Route: 042
     Dates: start: 20180225, end: 20180302
  6. BACTRIM [Suspect]
     Active Substance: SULFAMETHOXAZOLE\TRIMETHOPRIM
     Dosage: 1200 MG, WEEKLY
     Route: 042
     Dates: start: 20180305
  7. DIAMOX SEQUELS [Suspect]
     Active Substance: ACETAZOLAMIDE
     Dosage: 50 MG, 1X/DAY
     Route: 042
     Dates: start: 20180228, end: 20180303

REACTIONS (1)
  - Pancreatitis [Recovering/Resolving]

NARRATIVE: CASE EVENT DATE: 20180301
